FAERS Safety Report 20035663 (Version 2)
Quarter: 2021Q4

REPORT INFORMATION
  Report Type: Spontaneous
  Country: US (occurrence: US)
  Receive Date: 20211104
  Receipt Date: 20211117
  Transmission Date: 20220303
  Serious: Yes (Life-Threatening, Hospitalization, Other)
  Sender: FDA-Public Use
  Company Number: US-TEVA-2021-US-1972709

PATIENT
  Age: 78 Year
  Sex: Female

DRUGS (3)
  1. OXALIPLATIN [Suspect]
     Active Substance: OXALIPLATIN
     Indication: Cholangiocarcinoma
     Route: 050
  2. FLUOROURACIL [Suspect]
     Active Substance: FLUOROURACIL
     Indication: Cholangiocarcinoma
     Route: 050
  3. LEUCOVORIN [Concomitant]
     Active Substance: LEUCOVORIN
     Indication: Cholangiocarcinoma
     Route: 050

REACTIONS (3)
  - Neuropathy peripheral [Unknown]
  - Thrombocytopenia [Unknown]
  - Pulmonary alveolar haemorrhage [Recovering/Resolving]
